FAERS Safety Report 10190979 (Version 1)
Quarter: 2014Q2

REPORT INFORMATION
  Report Type: Spontaneous
  Country: AU (occurrence: AU)
  Receive Date: 20140523
  Receipt Date: 20140523
  Transmission Date: 20141212
  Serious: Yes (Other)
  Sender: FDA-Public Use
  Company Number: AU-ROCHE-1403549

PATIENT
  Sex: 0
  Weight: 70 kg

DRUGS (5)
  1. AVASTIN [Suspect]
     Indication: COLORECTAL CANCER METASTATIC
     Route: 065
  2. FOLINIC ACID [Concomitant]
     Route: 065
  3. 5-FLUOROURACIL [Concomitant]
  4. IRINOTECAN [Concomitant]
     Route: 065
  5. OXALIPLATIN [Concomitant]

REACTIONS (1)
  - Disease progression [Unknown]
